FAERS Safety Report 5354816-8 (Version None)
Quarter: 2007Q2

REPORT INFORMATION
  Report Type: 
  Country: None (occurrence: None)
  Receive Date: 20070612
  Receipt Date: 20070531
  Transmission Date: 20071010
  Serious: Yes (Other)
  Sender: FDA-Public Use
  Company Number: BR-PFIZER INC-2006104350

PATIENT
  Age: 62 Year
  Sex: Female

DRUGS (1)
  1. XALATAN [Suspect]
     Indication: GLAUCOMA
     Route: 047

REACTIONS (6)
  - BLINDNESS [None]
  - DRUG INEFFECTIVE [None]
  - EYE OPERATION [None]
  - GAMMA-GLUTAMYLTRANSFERASE INCREASED [None]
  - INTRAOCULAR PRESSURE INCREASED [None]
  - VISION BLURRED [None]
